FAERS Safety Report 17723765 (Version 2)
Quarter: 2021Q2

REPORT INFORMATION
  Report Type: Report from Study
  Country: CA (occurrence: CA)
  Receive Date: 20200429
  Receipt Date: 20210406
  Transmission Date: 20210716
  Serious: Yes (Other)
  Sender: FDA-Public Use
  Company Number: CA-JNJFOC-20200430510

PATIENT
  Sex: Male

DRUGS (2)
  1. STELARA [Suspect]
     Active Substance: USTEKINUMAB
     Indication: CROHN^S DISEASE
     Route: 058
  2. STELARA [Suspect]
     Active Substance: USTEKINUMAB
     Dosage: INDUCTION DOSE
     Route: 042

REACTIONS (5)
  - Product use issue [Unknown]
  - Faecal calprotectin increased [Unknown]
  - Off label use [Unknown]
  - Anal abscess [Unknown]
  - Malaise [Not Recovered/Not Resolved]
